FAERS Safety Report 15772746 (Version 3)
Quarter: 2019Q1

REPORT INFORMATION
  Report Type: Spontaneous
  Country: US (occurrence: US)
  Receive Date: 20181228
  Receipt Date: 20190314
  Transmission Date: 20190417
  Serious: No
  Sender: FDA-Public Use
  Company Number: US-PFIZER INC-2018532563

PATIENT
  Age: 70 Year
  Sex: Female
  Weight: 44 kg

DRUGS (1)
  1. IBRANCE [Suspect]
     Active Substance: PALBOCICLIB
     Indication: BREAST CANCER METASTATIC
     Dosage: 100 MG, 1X/DAY FOR 21DAYS
     Route: 048
     Dates: start: 201807

REACTIONS (7)
  - Diarrhoea [Recovered/Resolved]
  - Emotional disorder [Unknown]
  - Eating disorder [Recovering/Resolving]
  - Condition aggravated [Recovering/Resolving]
  - Neoplasm progression [Unknown]
  - Weight decreased [Unknown]
  - Constipation [Recovered/Resolved]

NARRATIVE: CASE EVENT DATE: 2018
